FAERS Safety Report 24225313 (Version 1)
Quarter: 2024Q3

REPORT INFORMATION
  Report Type: Spontaneous
  Country: CA (occurrence: CA)
  Receive Date: 20240820
  Receipt Date: 20240820
  Transmission Date: 20241017
  Serious: Yes (Other)
  Sender: CHEPLAPHARM
  Company Number: CA-CHEPLA-2024010570

PATIENT
  Age: 32 Year
  Sex: Female

DRUGS (2)
  1. VALGANCICLOVIR [Suspect]
     Active Substance: VALGANCICLOVIR
     Indication: Cytomegalovirus infection
     Dosage: BID?DAILY DOSE: 1800 MILLIGRAM
  2. VALGANCICLOVIR [Suspect]
     Active Substance: VALGANCICLOVIR
     Indication: Cytomegalovirus infection
     Dosage: RESTARTED

REACTIONS (3)
  - Retinal occlusive vasculitis [Unknown]
  - Hypertransaminasaemia [Unknown]
  - Off label use [Unknown]
